FAERS Safety Report 24881216 (Version 1)
Quarter: 2025Q1

REPORT INFORMATION
  Report Type: Spontaneous
  Country: MX (occurrence: MX)
  Receive Date: 20250124
  Receipt Date: 20250124
  Transmission Date: 20250408
  Serious: Yes (Disabling, Other)
  Sender: NOVO NORDISK
  Company Number: MX-NOVOPROD-1350127

PATIENT
  Age: 22 Year
  Sex: Male
  Weight: 72 kg

DRUGS (1)
  1. NOVOEIGHT [Suspect]
     Active Substance: ANTIHEMOPHILIC FACTOR, HUMAN RECOMBINANT
     Indication: Factor VIII deficiency
     Dosage: 2000 IU, TIW(FREQUENCY: MONDAY, WEDNESDAY AND FRIDAY; INITIATED APPROXIMATELY 4 YEARS AGO)
     Route: 042
     Dates: start: 2021

REACTIONS (5)
  - Ligament sprain [Recovering/Resolving]
  - Accident at work [Recovering/Resolving]
  - Tendon injury [Unknown]
  - Meniscus injury [Unknown]
  - Arthritis infective [Unknown]

NARRATIVE: CASE EVENT DATE: 20241101
